FAERS Safety Report 4895884-7 (Version None)
Quarter: 2006Q1

REPORT INFORMATION
  Report Type: 
  Country: None (occurrence: None)
  Receive Date: 20060125
  Receipt Date: 20060112
  Transmission Date: 20060701
  Serious: Yes (Other)
  Sender: FDA-Public Use
  Company Number: 2006008262

PATIENT

DRUGS (1)
  1. SOLU-MEDROL [Suspect]
     Indication: SPINAL CORD INJURY

REACTIONS (3)
  - BENIGN INTRACRANIAL HYPERTENSION [None]
  - COMA [None]
  - HYPERTENSION [None]
